FAERS Safety Report 9296623 (Version 2)
Quarter: 2013Q4

REPORT INFORMATION
  Report Type: Spontaneous
  Country: DK (occurrence: DK)
  Receive Date: 20130517
  Receipt Date: 20131203
  Transmission Date: 20140711
  Serious: Yes (Other)
  Sender: FDA-Public Use
  Company Number: PHHY2013DK048111

PATIENT
  Age: 73 Year
  Sex: Female

DRUGS (2)
  1. ZOMETA [Suspect]
     Indication: BREAST CANCER METASTATIC
     Dosage: 4 MG, UNK
     Route: 042
     Dates: start: 20120815, end: 20130110
  2. VINORELBINE [Concomitant]
     Indication: CHEMOTHERAPY
     Dosage: UNK UKN, UNK
     Dates: start: 201208

REACTIONS (7)
  - Osteonecrosis of jaw [Not Recovered/Not Resolved]
  - Exposed bone in jaw [Not Recovered/Not Resolved]
  - Oral mucosal erythema [Unknown]
  - Pain in jaw [Unknown]
  - Swelling [Unknown]
  - Infection [Unknown]
  - Bone lesion [Unknown]
